FAERS Safety Report 18199925 (Version 3)
Quarter: 2020Q3

REPORT INFORMATION
  Report Type: Report from Study
  Country: CA (occurrence: CA)
  Receive Date: 20200826
  Receipt Date: 20200915
  Transmission Date: 20201103
  Serious: Yes (Other)
  Sender: FDA-Public Use
  Company Number: CA-HLS-202001072

PATIENT
  Age: 56 Year
  Sex: Male

DRUGS (16)
  1. ZOPICLONE [Concomitant]
     Active Substance: ZOPICLONE
     Indication: INSOMNIA
     Dosage: 7.5MG QHS
     Route: 048
     Dates: start: 20200816, end: 20200817
  2. POLYETHYLENE GLYCOL 3350. [Concomitant]
     Active Substance: POLYETHYLENE GLYCOL 3350
     Dosage: 17G DAILY, PRN
     Route: 048
     Dates: start: 20200825
  3. TYLENOL [Concomitant]
     Active Substance: ACETAMINOPHEN
     Dosage: 650MG 4X DAILY
     Route: 048
     Dates: start: 20200815
  4. DIMENHYDRINATE. [Concomitant]
     Active Substance: DIMENHYDRINATE
     Dosage: 25 ? 50 MG  EVERY 4 HRS PRN
     Route: 065
  5. ASPRIN [Concomitant]
     Active Substance: ASPIRIN
     Dosage: 81MD DAILY
     Route: 065
     Dates: start: 20200730
  6. TAMSULOSIN [Concomitant]
     Active Substance: TAMSULOSIN
     Dosage: 0.6MG DAILY
     Route: 048
     Dates: start: 20200810
  7. BROMOCRIPTINE [Concomitant]
     Active Substance: BROMOCRIPTINE
     Dosage: 2.5MG X4 DAILY
     Route: 048
     Dates: start: 20200815
  8. FERROUS SULFATE. [Concomitant]
     Active Substance: FERROUS SULFATE
     Dosage: 300 MG DAILY
     Route: 048
     Dates: start: 20200817
  9. PANTOPRAZOLE MAGNESIUM [Concomitant]
     Active Substance: PANTOPRAZOLE MAGNESIUM
     Dosage: 40MG DAILY
     Route: 048
     Dates: start: 20200731
  10. FOLIC ACID. [Concomitant]
     Active Substance: FOLIC ACID
     Dosage: 5MG DAILY
     Route: 048
     Dates: start: 20200710
  11. ROSUVASTATIN. [Concomitant]
     Active Substance: ROSUVASTATIN
     Dosage: 40 MG DAILY
     Route: 048
     Dates: start: 20200815
  12. ZOPICLONE [Concomitant]
     Active Substance: ZOPICLONE
     Indication: INSOMNIA
     Dosage: 15 MG DAILY
     Route: 048
     Dates: start: 20200817
  13. CLOZARIL [Suspect]
     Active Substance: CLOZAPINE
     Indication: PRODUCT USED FOR UNKNOWN INDICATION
     Route: 048
     Dates: start: 19941123
  14. AMLODIPINE [Concomitant]
     Active Substance: AMLODIPINE BESYLATE
     Dosage: 10MG DAILY
     Route: 048
     Dates: start: 20200810
  15. CLOZARIL [Suspect]
     Active Substance: CLOZAPINE
     Indication: PRODUCT USED FOR UNKNOWN INDICATION
     Dosage: 12.5 MG QHS
     Route: 048
     Dates: start: 20200817
  16. METFORMIN [Concomitant]
     Active Substance: METFORMIN HYDROCHLORIDE
     Dosage: 850 MG BID
     Route: 048
     Dates: start: 20200815

REACTIONS (10)
  - Encephalopathy [Unknown]
  - Platelet count decreased [Unknown]
  - Pyelonephritis [Unknown]
  - Red blood cell count decreased [Unknown]
  - Splenomegaly [Unknown]
  - Haematocrit decreased [Unknown]
  - Haemoglobin decreased [Unknown]
  - Neuroleptic malignant syndrome [Unknown]
  - Sepsis [Unknown]
  - Pancreatic atrophy [Unknown]

NARRATIVE: CASE EVENT DATE: 20200824
